FAERS Safety Report 22678208 (Version 3)
Quarter: 2023Q4

REPORT INFORMATION
  Report Type: Spontaneous
  Country: US (occurrence: US)
  Receive Date: 20230706
  Receipt Date: 20231024
  Transmission Date: 20240109
  Serious: No
  Sender: FDA-Public Use
  Company Number: US-PFIZER INC-US-GBT-021537

PATIENT
  Age: 13 Year
  Sex: Male

DRUGS (4)
  1. OXBRYTA [Suspect]
     Active Substance: VOXELOTOR
     Indication: Sickle cell disease
     Dosage: UNK (2 PILLS A DAY)
  2. OXBRYTA [Suspect]
     Active Substance: VOXELOTOR
     Dosage: UNK (DOSE REDUCED)
  3. OXBRYTA [Suspect]
     Active Substance: VOXELOTOR
     Dosage: 1000 MG, 1X/DAY (ONCE DAILY)
  4. OXBRYTA [Suspect]
     Active Substance: VOXELOTOR
     Dosage: 1500 MG, 1X/DAY (3 TABLETS ONCE DAILY)
     Route: 048
     Dates: start: 20210701

REACTIONS (3)
  - Abdominal discomfort [Recovered/Resolved]
  - Weight decreased [Unknown]
  - Off label use [Unknown]
